FAERS Safety Report 17740282 (Version 1)
Quarter: 2020Q2

REPORT INFORMATION
  Report Type: Spontaneous
  Country: US (occurrence: US)
  Receive Date: 20200504
  Receipt Date: 20200504
  Transmission Date: 20200714
  Serious: Yes (Hospitalization)
  Sender: FDA-Public Use
  Company Number: None

PATIENT
  Age: 60 Year
  Sex: Male
  Weight: 53.07 kg

DRUGS (1)
  1. HYDROXYUREA (HYDROXYUREA 500MG CAP) [Suspect]
     Active Substance: HYDROXYUREA
     Indication: POLYCYTHAEMIA VERA
     Route: 048
     Dates: start: 20190321, end: 20190925

REACTIONS (5)
  - Anaemia [None]
  - Leukopenia [None]
  - Pancytopenia [None]
  - Bone marrow failure [None]
  - Thrombocytopenia [None]

NARRATIVE: CASE EVENT DATE: 20190922
